FAERS Safety Report 16685483 (Version 2)
Quarter: 2021Q4

REPORT INFORMATION
  Report Type: Spontaneous
  Country: US (occurrence: US)
  Receive Date: 20190809
  Receipt Date: 20211012
  Transmission Date: 20220303
  Serious: No
  Sender: FDA-Public Use
  Company Number: US-SA-2019SA215343

PATIENT
  Age: 20 Year
  Sex: Female

DRUGS (6)
  1. DUPIXENT [Suspect]
     Active Substance: DUPILUMAB
     Indication: Dermatitis atopic
     Dosage: 300 MG, QOW
     Route: 058
     Dates: start: 20191109
  2. DIPHENHYDRAMINE HYDROCHLORIDE [Concomitant]
     Active Substance: DIPHENHYDRAMINE HYDROCHLORIDE
  3. VYVANSE [Concomitant]
     Active Substance: LISDEXAMFETAMINE DIMESYLATE
  4. DESONIDE [Concomitant]
     Active Substance: DESONIDE
  5. FLUTICASONE [Concomitant]
     Active Substance: FLUTICASONE
  6. BACITRACIN ZINC\GRAMICIDIN\POLYMYXIN B SULFATE [Concomitant]
     Active Substance: BACITRACIN ZINC\GRAMICIDIN\POLYMYXIN B SULFATE

REACTIONS (3)
  - Rash [Not Recovered/Not Resolved]
  - Product dose omission issue [Not Recovered/Not Resolved]
  - Exposure during pregnancy [Unknown]
